FAERS Safety Report 21902403 (Version 2)
Quarter: 2023Q1

REPORT INFORMATION
  Report Type: Report from Study
  Country: US (occurrence: US)
  Receive Date: 20230124
  Receipt Date: 20230127
  Transmission Date: 20230418
  Serious: No
  Sender: FDA-Public Use
  Company Number: US-ALNYLAM PHARMACEUTICALS, INC.-ALN-2023-000325

PATIENT

DRUGS (1)
  1. GIVLAARI [Suspect]
     Active Substance: GIVOSIRAN SODIUM
     Indication: Product used for unknown indication
     Dosage: 143.33 (UNSPECIFIED UNIT) (189 MG/ML), MONTHLY
     Route: 058
     Dates: start: 20221129

REACTIONS (2)
  - Injection site discomfort [Unknown]
  - Injection site pain [Unknown]
